FAERS Safety Report 13233917 (Version 1)
Quarter: 2017Q1

REPORT INFORMATION
  Report Type: Spontaneous
  Country: GB (occurrence: GB)
  Receive Date: 20170215
  Receipt Date: 20170215
  Transmission Date: 20170428
  Serious: Yes (Hospitalization)
  Sender: FDA-Public Use
  Company Number: GB-TORRENT-00009064

PATIENT
  Age: 69 Year
  Sex: Male

DRUGS (1)
  1. CLOPIDOGREL [Suspect]
     Active Substance: CLOPIDOGREL BISULFATE

REACTIONS (5)
  - Retroperitoneal haematoma [Unknown]
  - Gastrointestinal necrosis [Unknown]
  - Rectal perforation [Unknown]
  - Peritonitis [Unknown]
  - Intestinal ischaemia [Unknown]
